FAERS Safety Report 5235990-0 (Version None)
Quarter: 2007Q1

REPORT INFORMATION
  Report Type: 
  Country: None (occurrence: None)
  Receive Date: 20061208
  Receipt Date: 20060727
  Transmission Date: 20070707
  Serious: Yes (Other)
  Sender: FDA-Public Use
  Company Number: 2006UW05862

PATIENT
  Age: 57 Year
  Sex: Male
  Weight: 74.8435 kg

DRUGS (4)
  1. CRESTOR [Suspect]
     Indication: BLOOD CHOLESTEROL INCREASED
     Dosage: 5 MG PO
     Route: 048
     Dates: start: 20041101
  2. CRESTOR [Suspect]
     Indication: BLOOD CHOLESTEROL INCREASED
     Dosage: 2.5 MG PO
     Route: 048
     Dates: start: 20041101
  3. VITAMINS [Concomitant]
  4. EYE DROPS [Concomitant]

REACTIONS (6)
  - ASTHENIA [None]
  - BACK PAIN [None]
  - GASTROINTESTINAL DISORDER [None]
  - MEDICATION ERROR [None]
  - NAUSEA [None]
  - WEIGHT DECREASED [None]
